FAERS Safety Report 10381187 (Version 1)
Quarter: 2014Q1

REPORT INFORMATION
  Report Type: Spontaneous
  Country: US (occurrence: None)
  Receive Date: 20140306
  Receipt Date: 20140306
  Transmission Date: 20141002
  Serious: No
  Sender: FDA-Public Use
  Company Number: 163-21880-13031010

PATIENT
  Age: 71 Year
  Sex: Male

DRUGS (6)
  1. REVLIMID (LENALIDOMIDE) (15 MILLIGRAM, CAPSULES) [Suspect]
     Indication: NON-HODGKIN^S LYMPHOMA
     Dosage: 15 MG, 21 IN 28 D, PO
     Route: 048
     Dates: start: 20130207, end: 201303
  2. REVLIMID (LENALIDOMIDE) (15 MILLIGRAM, CAPSULES) [Suspect]
     Indication: DIFFUSE LARGE B-CELL LYMPHOMA
     Dosage: 15 MG, 21 IN 28 D, PO
     Route: 048
     Dates: start: 20130207, end: 201303
  3. RITUXAN (RITUXIMAB) [Concomitant]
  4. GAMUNEX (IMMUNOGLOBULIN) [Concomitant]
  5. IVIG (IMMUNOGLOBULIN) [Concomitant]
  6. VELCADE (BORTEZOMIB) [Concomitant]

REACTIONS (8)
  - Hypotension [None]
  - Diarrhoea [None]
  - Fatigue [None]
  - Blood calcium increased [None]
  - Balance disorder [None]
  - Fall [None]
  - Muscular weakness [None]
  - Decreased appetite [None]
